FAERS Safety Report 14292966 (Version 1)
Quarter: 2017Q4

REPORT INFORMATION
  Report Type: Spontaneous
  Country: CA (occurrence: CA)
  Receive Date: 20171215
  Receipt Date: 20171215
  Transmission Date: 20180321
  Serious: Yes (Other)
  Sender: FDA-Public Use
  Company Number: CA-GE HEALTHCARE LIFE SCIENCES-2017CSU004061

PATIENT

DRUGS (1)
  1. OMNIPAQUE [Suspect]
     Active Substance: IOHEXOL
     Indication: PULMONARY EMBOLISM
     Dosage: 80 ML, SINGLE
     Route: 042
     Dates: start: 20171018, end: 20171018

REACTIONS (3)
  - Dysphagia [Unknown]
  - Throat tightness [Recovered/Resolved]
  - Chest discomfort [Recovered/Resolved]

NARRATIVE: CASE EVENT DATE: 20171018
